FAERS Safety Report 12177746 (Version 3)
Quarter: 2016Q2

REPORT INFORMATION
  Report Type: Report from Study
  Country: US (occurrence: US)
  Receive Date: 20160315
  Receipt Date: 20160425
  Transmission Date: 20160815
  Serious: Yes (Other)
  Sender: FDA-Public Use
  Company Number: US-AMGEN-USASL2016028615

PATIENT
  Age: 41 Year
  Sex: Female

DRUGS (2)
  1. ENBREL [Suspect]
     Active Substance: ETANERCEPT
     Indication: ANKYLOSING SPONDYLITIS
     Dosage: 50 MG, WEEKLY
     Route: 065
     Dates: start: 20140301
  2. ENBREL [Suspect]
     Active Substance: ETANERCEPT
     Dosage: 50 MG, QWK
     Route: 065
     Dates: start: 201602

REACTIONS (10)
  - Maternal exposure during pregnancy [Recovered/Resolved]
  - Fatigue [Unknown]
  - Spinal disorder [Unknown]
  - Caesarean section [Recovered/Resolved]
  - Laryngitis [Recovering/Resolving]
  - Malaise [Unknown]
  - Orthosis user [Unknown]
  - Arthritis [Unknown]
  - Drug effect decreased [Unknown]
  - Pain [Unknown]

NARRATIVE: CASE EVENT DATE: 201503
